FAERS Safety Report 15539921 (Version 1)
Quarter: 2018Q4

REPORT INFORMATION
  Report Type: Report from Study
  Country: CA (occurrence: CA)
  Receive Date: 20181023
  Receipt Date: 20181023
  Transmission Date: 20190205
  Serious: Yes (Death)
  Sender: FDA-Public Use
  Company Number: CA-ORION CORPORATION ORION PHARMA-TREX2018-2977

PATIENT
  Age: 32 Year
  Sex: Male

DRUGS (9)
  1. NAPROXEN. [Concomitant]
     Active Substance: NAPROXEN
     Route: 065
  2. METHOTREXATE (TRADE NAME UNKNOWN) [Suspect]
     Active Substance: METHOTREXATE
     Indication: PRODUCT USED FOR UNKNOWN INDICATION
     Route: 065
  3. PREDNISONE. [Concomitant]
     Active Substance: PREDNISONE
     Route: 065
  4. TEMAZEPAM. [Concomitant]
     Active Substance: TEMAZEPAM
     Route: 065
  5. ENBREL [Concomitant]
     Active Substance: ETANERCEPT
     Route: 065
  6. HUMIRA [Concomitant]
     Active Substance: ADALIMUMAB
     Route: 065
  7. HYDROMORPHONE HYDROCHLORIDE. [Suspect]
     Active Substance: HYDROMORPHONE HYDROCHLORIDE
     Indication: PRODUCT USED FOR UNKNOWN INDICATION
     Route: 065
  8. CIMZIA [Concomitant]
     Active Substance: CERTOLIZUMAB PEGOL
     Route: 065
  9. REMICADE [Concomitant]
     Active Substance: INFLIXIMAB
     Route: 065

REACTIONS (2)
  - Death [Fatal]
  - Incorrect dose administered [Fatal]
